FAERS Safety Report 8588731-3 (Version None)
Quarter: 2012Q3

REPORT INFORMATION
  Report Type: 
  Country: None (occurrence: None)
  Receive Date: 20120813
  Receipt Date: 20120809
  Transmission Date: 20120928
  Serious: Yes (Death, Hospitalization)
  Sender: FDA-Public Use
  Company Number: PHHY2012BE069161

PATIENT
  Sex: Female

DRUGS (8)
  1. SINTROM [Concomitant]
  2. ESCITALOPRAM OXALATE [Concomitant]
  3. PERINDOPRIL ERBUMINE [Concomitant]
  4. ZOLEDRONOC ACID [Suspect]
     Indication: OSTEOPOROSIS
     Dosage: 5 MG, UNK
     Route: 042
     Dates: start: 20110909
  5. CALCIUM [Concomitant]
  6. AMIODARONE HCL [Concomitant]
  7. LASIX [Concomitant]
  8. VITAMIN D [Concomitant]

REACTIONS (2)
  - CARDIAC FAILURE [None]
  - CEREBRAL HAEMORRHAGE [None]
